FAERS Safety Report 18980165 (Version 1)
Quarter: 2021Q1

REPORT INFORMATION
  Report Type: Spontaneous
  Country: US (occurrence: US)
  Receive Date: 20210305
  Receipt Date: 20210305
  Transmission Date: 20210420
  Serious: Yes (Death)
  Sender: FDA-Public Use
  Company Number: None

PATIENT
  Age: 19 Year
  Sex: Female

DRUGS (1)
  1. ADCIRCA [Suspect]
     Active Substance: TADALAFIL
     Indication: PULMONARY ARTERIAL HYPERTENSION
     Route: 048
     Dates: end: 20210303

REACTIONS (5)
  - Oxygen saturation decreased [None]
  - Haemoptysis [None]
  - Cardiac arrest [None]
  - Cough [None]
  - Brain injury [None]

NARRATIVE: CASE EVENT DATE: 20210215
